FAERS Safety Report 4328724-5 (Version None)
Quarter: 2004Q1

REPORT INFORMATION
  Report Type: 
  Country: None (occurrence: None)
  Receive Date: 20040329
  Receipt Date: 20040212
  Transmission Date: 20041129
  Serious: Yes (Hospitalization)
  Sender: FDA-Public Use
  Company Number: 04P-163-0250044-00

PATIENT
  Age: 59 Year
  Sex: Female
  Weight: 73.9363 kg

DRUGS (7)
  1. HUMIRA [Suspect]
     Indication: RHEUMATOID ARTHRITIS
     Dosage: 40 MG, 1 IN 2 WK, SUBCUTANEOUS
     Route: 058
     Dates: start: 20030601, end: 20030801
  2. INHALERS [Concomitant]
  3. METHOTREXATE [Concomitant]
  4. CELECOXIB [Concomitant]
  5. AMITRIPTYLINE HYDROCHLORIDE [Concomitant]
  6. ESTROGENS CONJUGATED [Concomitant]
  7. CARDIO 180 [Concomitant]

REACTIONS (3)
  - CELLULITIS [None]
  - INJECTION SITE BURNING [None]
  - PNEUMONIA [None]
